FAERS Safety Report 6612693-9 (Version None)
Quarter: 2010Q1

REPORT INFORMATION
  Report Type: 
  Country: None (occurrence: None)
  Receive Date: 20100303
  Receipt Date: 20100223
  Transmission Date: 20100710
  Serious: Yes (Other)
  Sender: FDA-Public Use
  Company Number: US-PFIZER INC-2009309062

PATIENT
  Age: 79 Year
  Sex: Male
  Weight: 91.61 kg

DRUGS (10)
  1. XALATAN [Suspect]
     Indication: GLAUCOMA
     Dosage: 1 DROP IN EACH EYE, 1X/DAY
     Route: 047
     Dates: start: 20040908
  2. COSOPT [Concomitant]
     Dosage: 1 DROP IN BOTH EYES, TWICE DAILY
     Route: 047
     Dates: start: 20030512
  3. SYNTHROID [Concomitant]
     Indication: THYROID DISORDER
     Dosage: UNK
  4. QUINAPRIL HYDROCHLORIDE [Concomitant]
     Dosage: UNK
  5. NAPROXEN [Concomitant]
     Dosage: FREQUENCY: AS NEEDED,
  6. TRAVATAN [Concomitant]
     Dosage: 1 GTT, 1X/DAY
     Route: 047
     Dates: start: 20040811, end: 20040908
  7. ALPHAGAN [Concomitant]
     Dosage: FREQUENCY: 2X/DAY,
     Route: 047
     Dates: start: 20041006, end: 20041103
  8. LUMIGAN [Concomitant]
     Dosage: 1 GTT, 1X/DAY
     Route: 047
  9. HYTRIN [Concomitant]
  10. HYZAAR [Concomitant]

REACTIONS (4)
  - HYPERTENSION [None]
  - HYPOTHYROIDISM [None]
  - MACULOPATHY [None]
  - NEPHROLITHIASIS [None]
